FAERS Safety Report 6292586-X (Version None)
Quarter: 2009Q3

REPORT INFORMATION
  Report Type: 
  Country: None (occurrence: None)
  Receive Date: 20090731
  Receipt Date: 20090721
  Transmission Date: 20100115
  Serious: Yes (Other)
  Sender: FDA-Public Use
  Company Number: GB-JNJFOC-20090707031

PATIENT

DRUGS (3)
  1. INFLIXIMAB [Suspect]
     Indication: VASCULITIS
     Dosage: ONE DOSE
     Route: 042
  2. CYCLOPHOSPHAMIDE [Concomitant]
     Indication: VASCULITIS
     Dosage: 600MG/M^2, 6 MONTHLY PULSES
  3. AZATHIOPRINE [Concomitant]
     Indication: VASCULITIS

REACTIONS (1)
  - HERPES ZOSTER [None]
